FAERS Safety Report 10154662 (Version 4)
Quarter: 2015Q1

REPORT INFORMATION
  Report Type: Spontaneous
  Country: US (occurrence: US)
  Receive Date: 20140506
  Receipt Date: 20150302
  Transmission Date: 20150720
  Serious: Yes (Hospitalization, Other)
  Sender: FDA-Public Use
  Company Number: US-BAYER-2014-064379

PATIENT
  Age: 22 Year
  Sex: Female
  Weight: 66 kg

DRUGS (5)
  1. MIRENA [Suspect]
     Active Substance: LEVONORGESTREL
     Indication: CONTRACEPTION
     Dosage: 20 MCG/24HR, CONT
     Route: 015
     Dates: start: 20120206, end: 20131122
  2. DIFLUCAN [Concomitant]
     Active Substance: FLUCONAZOLE
  3. DOXYCYCLINE. [Concomitant]
     Active Substance: DOXYCYCLINE
  4. METROGEL [Concomitant]
     Active Substance: METRONIDAZOLE
  5. LOESTRIN NOS [Concomitant]
     Active Substance: ETHINYL ESTRADIOL\NORETHINDRONE ACETATE

REACTIONS (11)
  - Menorrhagia [Recovered/Resolved]
  - Embedded device [None]
  - Depression [None]
  - Anxiety [None]
  - Emotional distress [None]
  - Back pain [None]
  - Injury [None]
  - Pain [None]
  - Abdominal pain [None]
  - Uterine perforation [None]
  - Scar [None]

NARRATIVE: CASE EVENT DATE: 201202
